FAERS Safety Report 6333829-3 (Version None)
Quarter: 2009Q3

REPORT INFORMATION
  Report Type: 
  Country: None (occurrence: None)
  Receive Date: 20090829
  Receipt Date: 20090608
  Transmission Date: 20100115
  Serious: No
  Sender: FDA-Public Use
  Company Number: US-ABBOTT-09P-163-0578497-00

PATIENT
  Sex: Female
  Weight: 99.88 kg

DRUGS (7)
  1. SIMCOR [Suspect]
     Indication: BLOOD CHOLESTEROL INCREASED
     Dates: start: 20090401
  2. ASPIRIN [Concomitant]
     Indication: DRUG USE FOR UNKNOWN INDICATION
  3. INHALERS [Concomitant]
     Indication: DRUG USE FOR UNKNOWN INDICATION
  4. BREATHING TREATMENT [Concomitant]
     Indication: DRUG USE FOR UNKNOWN INDICATION
     Dosage: Q 4 HR
  5. ACID REFLUX MED [Concomitant]
     Indication: DRUG USE FOR UNKNOWN INDICATION
  6. PILLS FOR CARPAL TUNNEL [Concomitant]
     Indication: DRUG USE FOR UNKNOWN INDICATION
  7. VOLTARINDIL [Concomitant]
     Indication: DRUG USE FOR UNKNOWN INDICATION
     Dosage: 1 MG CREAM FOR KNEE

REACTIONS (1)
  - FEELING ABNORMAL [None]
